FAERS Safety Report 9394710 (Version 2)
Quarter: 2013Q3

REPORT INFORMATION
  Report Type: Report from Study
  Country: ES (occurrence: ES)
  Receive Date: 20130711
  Receipt Date: 20130729
  Transmission Date: 20140515
  Serious: No
  Sender: FDA-Public Use
  Company Number: ES-MPIJNJ-2013-05326

PATIENT
  Sex: 0

DRUGS (3)
  1. VELCADE [Suspect]
     Indication: PLASMA CELL MYELOMA
     Dosage: 1.3 MG/M2, CYCLIC
     Route: 042
  2. FLUDARABINE [Suspect]
     Indication: PLASMA CELL MYELOMA
     Dosage: 30 MG/M2, CYCLIC
     Route: 042
  3. MELPHALAN [Suspect]
     Indication: PLASMA CELL MYELOMA
     Dosage: 70 MG/M2, CYCLIC
     Route: 042

REACTIONS (1)
  - Delayed engraftment [Unknown]
